FAERS Safety Report 9094374 (Version 1)
Quarter: 2013Q1

REPORT INFORMATION
  Report Type: Spontaneous
  Country: US (occurrence: None)
  Receive Date: 20130215
  Receipt Date: 20130215
  Transmission Date: 20140127
  Serious: No
  Sender: FDA-Public Use
  Company Number: None

PATIENT
  Sex: Male
  Weight: 89.36 kg

DRUGS (1)
  1. ATORVASTATIN [Suspect]
     Indication: HYPERLIPIDAEMIA
     Dosage: 1POD
     Route: 048
     Dates: start: 20120824, end: 20130128

REACTIONS (3)
  - Flatulence [None]
  - Constipation [None]
  - Product substitution issue [None]
